FAERS Safety Report 7119188-7 (Version None)
Quarter: 2010Q4

REPORT INFORMATION
  Report Type: 
  Country: None (occurrence: None)
  Receive Date: 20101123
  Receipt Date: 20101122
  Transmission Date: 20110411
  Serious: No
  Sender: FDA-Public Use
  Company Number: US-B.I. PHARMACEUTICALS,INC./RIDGEFIELD-2010-BP-12744BP

PATIENT
  Sex: Male

DRUGS (5)
  1. SPIRIVA [Suspect]
     Indication: EMPHYSEMA
     Dosage: 18 MCG
     Route: 055
     Dates: start: 20101003
  2. AMLODIPINE [Concomitant]
     Indication: HYPERTENSION
     Route: 048
  3. CLONAZEPAM [Concomitant]
     Indication: ANXIETY
     Route: 048
  4. OXYGEN [Concomitant]
     Indication: EMPHYSEMA
     Route: 055
  5. BUPROPION [Concomitant]
     Indication: DEPRESSION
     Route: 048

REACTIONS (2)
  - CHEST PAIN [None]
  - DYSPNOEA [None]
